FAERS Safety Report 7539484-9 (Version None)
Quarter: 2011Q2

REPORT INFORMATION
  Report Type: 
  Country: None (occurrence: None)
  Receive Date: 20110610
  Receipt Date: 20110527
  Transmission Date: 20111010
  Serious: Yes (Hospitalization)
  Sender: FDA-Public Use
  Company Number: US-JNJFOC-20110508757

PATIENT
  Sex: Male
  Weight: 41.7 kg

DRUGS (7)
  1. INFLIXIMAB, RECOMBINANT [Suspect]
     Indication: INFLAMMATORY BOWEL DISEASE
     Route: 042
     Dates: start: 20070804, end: 20090402
  2. CYPROHEPTADINE HCL [Concomitant]
  3. ANTIBIOTICS FOR IBD [Concomitant]
  4. VITAMIN D [Concomitant]
  5. FERROUS SULFATE TAB [Concomitant]
  6. THALIDOMIDE [Concomitant]
  7. CALCIUM CARBONATE [Concomitant]

REACTIONS (1)
  - WEIGHT DECREASED [None]
